FAERS Safety Report 20483239 (Version 3)
Quarter: 2022Q2

REPORT INFORMATION
  Report Type: Report from Study
  Country: FR (occurrence: None)
  Receive Date: 20220217
  Receipt Date: 20220516
  Transmission Date: 20220721
  Serious: Yes (Other)
  Sender: FDA-Public Use
  Company Number: FR-ROCHE-3020968

PATIENT
  Age: 72 Year
  Sex: Female

DRUGS (2)
  1. ATEZOLIZUMAB [Suspect]
     Active Substance: ATEZOLIZUMAB
     Indication: Sarcoma metastatic
     Route: 041
     Dates: start: 20210906, end: 20211220
  2. OXAZEPAM [Concomitant]
     Active Substance: OXAZEPAM

REACTIONS (1)
  - Pulmonary toxicity [Recovered/Resolved with Sequelae]

NARRATIVE: CASE EVENT DATE: 20220119
